FAERS Safety Report 19810032 (Version 1)
Quarter: 2021Q3

REPORT INFORMATION
  Report Type: Spontaneous
  Country: CN (occurrence: CN)
  Receive Date: 20210909
  Receipt Date: 20210909
  Transmission Date: 20211014
  Serious: Yes (Hospitalization)
  Sender: FDA-Public Use
  Company Number: CN-GLAXOSMITHKLINE-CN2021APC188984

PATIENT
  Age: 20 Year
  Sex: Female
  Weight: 60 kg

DRUGS (11)
  1. CEFEPIM [Suspect]
     Active Substance: CEFEPIME HYDROCHLORIDE
     Indication: MOUTH ULCERATION
     Dosage: UNK
     Route: 058
  2. CEFEPIM [Suspect]
     Active Substance: CEFEPIME HYDROCHLORIDE
     Indication: WHITE BLOOD CELL COUNT DECREASED
  3. CEFTIZOXIME [Suspect]
     Active Substance: CEFTIZOXIME
     Indication: MOUTH ULCERATION
     Dosage: UNK
     Route: 058
  4. HUMAN GRANULOCYTE COLONY STIMULATING FACTOR [Suspect]
     Active Substance: GRANULOCYTE COLONY-STIMULATING FACTOR NOS
     Indication: WHITE BLOOD CELL COUNT DECREASED
  5. HUMAN GRANULOCYTE COLONY STIMULATING FACTOR [Suspect]
     Active Substance: GRANULOCYTE COLONY-STIMULATING FACTOR NOS
     Indication: MOUTH ULCERATION
     Dosage: UNK
     Route: 058
  6. CEFEPIM [Suspect]
     Active Substance: CEFEPIME HYDROCHLORIDE
     Indication: NEUTROPHIL COUNT DECREASED
  7. TRILEPTAL [Concomitant]
     Active Substance: OXCARBAZEPINE
     Indication: EPILEPSY
     Dosage: 300 MG, BID
     Route: 048
     Dates: start: 20210729, end: 20210804
  8. LAMICTAL [Suspect]
     Active Substance: LAMOTRIGINE
     Indication: EPILEPSY
     Dosage: 50 MG, BID
     Route: 048
     Dates: start: 20210722, end: 20210804
  9. CEFTIZOXIME [Suspect]
     Active Substance: CEFTIZOXIME
     Indication: WHITE BLOOD CELL COUNT DECREASED
  10. HUMAN GRANULOCYTE COLONY STIMULATING FACTOR [Suspect]
     Active Substance: GRANULOCYTE COLONY-STIMULATING FACTOR NOS
     Indication: NEUTROPHIL COUNT DECREASED
  11. CEFTIZOXIME [Suspect]
     Active Substance: CEFTIZOXIME
     Indication: NEUTROPHIL COUNT DECREASED

REACTIONS (8)
  - Neutrophil count decreased [Recovering/Resolving]
  - Erythema [Recovering/Resolving]
  - White blood cell count decreased [Recovering/Resolving]
  - Rash [Recovered/Resolved]
  - Mouth ulceration [Recovering/Resolving]
  - Pyrexia [Recovered/Resolved]
  - Papule [Recovering/Resolving]
  - White blood cell count increased [Recovering/Resolving]

NARRATIVE: CASE EVENT DATE: 20210725
